FAERS Safety Report 6605067-8 (Version None)
Quarter: 2010Q1

REPORT INFORMATION
  Report Type: 
  Country: None (occurrence: None)
  Receive Date: 20100226
  Receipt Date: 20100216
  Transmission Date: 20100710
  Serious: Yes (Hospitalization, Other)
  Sender: FDA-Public Use
  Company Number: US-ELI_LILLY_AND_COMPANY-US201002004766

PATIENT
  Age: 78 Year
  Sex: Female

DRUGS (2)
  1. HUMULIN N [Suspect]
     Indication: DIABETES MELLITUS
     Dosage: 44 U, DAILY (1/D)
     Dates: start: 19900101
  2. HUMULIN N [Suspect]
     Dosage: 44 U, DAILY (1/D)
     Dates: start: 19900101

REACTIONS (11)
  - ABDOMINAL DISTENSION [None]
  - ANAPHYLACTIC REACTION [None]
  - ANXIETY [None]
  - ATRIAL FIBRILLATION [None]
  - BLOOD GLUCOSE INCREASED [None]
  - CARDIAC DISORDER [None]
  - CHEST DISCOMFORT [None]
  - DYSPEPSIA [None]
  - FOOD ALLERGY [None]
  - HYPERTENSION [None]
  - MYOCARDIAL INFARCTION [None]
